FAERS Safety Report 5589827-0 (Version None)
Quarter: 2007Q4

REPORT INFORMATION
  Report Type: 
  Country: None (occurrence: None)
  Receive Date: 20071212
  Receipt Date: 20070712
  Transmission Date: 20080405
  Serious: Yes (Other)
  Sender: FDA-Public Use
  Company Number: USA-2007-0028261

PATIENT
  Age: 19 Year
  Sex: Female
  Weight: 113.4 kg

DRUGS (3)
  1. OXYCONTIN [Suspect]
     Indication: SCIATICA
     Dosage: 80 MG, TID
     Dates: start: 20070626, end: 20070711
  2. XANAX [Concomitant]
  3. ROXICODONE [Concomitant]

REACTIONS (2)
  - DRUG ABUSER [None]
  - SUBSTANCE ABUSE [None]
